FAERS Safety Report 10567784 (Version 1)
Quarter: 2014Q4

REPORT INFORMATION
  Report Type: Spontaneous
  Country: US (occurrence: None)
  Receive Date: 20141105
  Receipt Date: 20141105
  Transmission Date: 20150529
  Serious: No
  Sender: FDA-Public Use
  Company Number: None

PATIENT
  Age: 25 Year
  Sex: Female

DRUGS (1)
  1. TECFIDERA [Suspect]
     Active Substance: DIMETHYL FUMARATE
     Indication: MULTIPLE SCLEROSIS
     Dosage: BEGINNING OF APRI1 TO CURRENT,  240MG, BID, ORAL
     Route: 048
     Dates: start: 201404

REACTIONS (2)
  - Alopecia [None]
  - Mood swings [None]

NARRATIVE: CASE EVENT DATE: 20140401
